FAERS Safety Report 24177367 (Version 1)
Quarter: 2024Q3

REPORT INFORMATION
  Report Type: Report from Study
  Country: US (occurrence: None)
  Receive Date: 20240806
  Receipt Date: 20240806
  Transmission Date: 20241017
  Serious: Yes (Other)
  Sender: ASTRAZENECA
  Company Number: 2023A095795

PATIENT
  Sex: Male

DRUGS (1)
  1. FARXIGA [Suspect]
     Active Substance: DAPAGLIFLOZIN PROPANEDIOL
     Route: 048

REACTIONS (7)
  - Neoplasm malignant [Unknown]
  - Abdominal pain [Unknown]
  - Nervousness [Unknown]
  - Feeling jittery [Unknown]
  - Fatigue [Unknown]
  - Asthenia [Unknown]
  - Product use issue [Unknown]
